FAERS Safety Report 9945601 (Version 1)
Quarter: 2014Q1

REPORT INFORMATION
  Report Type: Report from Study
  Country: US (occurrence: US)
  Receive Date: 20140303
  Receipt Date: 20140303
  Transmission Date: 20141002
  Serious: No
  Sender: FDA-Public Use
  Company Number: US-ABBVIE-13P-163-1050910-00

PATIENT
  Sex: Female
  Weight: 113.5 kg

DRUGS (15)
  1. HUMIRA [Suspect]
     Indication: RHEUMATOID ARTHRITIS
     Route: 058
     Dates: start: 2007, end: 2009
  2. METHOTREXATE [Concomitant]
     Indication: RHEUMATOID ARTHRITIS
  3. FOLIC ACID [Concomitant]
     Indication: VITAMIN SUPPLEMENTATION
  4. LEUCOVORIN [Concomitant]
     Indication: RHEUMATOID ARTHRITIS
  5. PROTONIX [Concomitant]
     Indication: HIATUS HERNIA
  6. SYNTHROID [Concomitant]
     Indication: THYROID DISORDER
  7. ZESTRIL [Concomitant]
     Indication: HYPERTENSION
  8. MEVACOR [Concomitant]
     Indication: BLOOD CHOLESTEROL INCREASED
  9. TRICOR [Concomitant]
     Indication: BLOOD CHOLESTEROL INCREASED
  10. PREDNISONE [Concomitant]
     Indication: RHEUMATOID ARTHRITIS
  11. CELEBREX [Concomitant]
     Indication: RHEUMATOID ARTHRITIS
  12. EFFEXOR [Concomitant]
     Indication: DEPRESSION
  13. TYLENOL WITH CODEIN #4 [Concomitant]
     Indication: PAIN
  14. PERCOCET [Concomitant]
     Indication: PAIN
  15. SOMA [Concomitant]
     Indication: PAIN

REACTIONS (6)
  - Local swelling [Not Recovered/Not Resolved]
  - Injection site pain [Recovered/Resolved]
  - Injection site pain [Recovered/Resolved]
  - Pain [Not Recovered/Not Resolved]
  - Fatigue [Not Recovered/Not Resolved]
  - Gait disturbance [Not Recovered/Not Resolved]
